FAERS Safety Report 9860068 (Version 2)
Quarter: 2014Q1

REPORT INFORMATION
  Report Type: Spontaneous
  Country: SE (occurrence: SE)
  Receive Date: 20140131
  Receipt Date: 20140131
  Transmission Date: 20141002
  Serious: Yes (Death, Hospitalization)
  Sender: FDA-Public Use
  Company Number: SE-ASTRAZENECA-2013SE79171

PATIENT
  Age: 27553 Day
  Sex: Male

DRUGS (6)
  1. ZOLADEX ORIFARM [Suspect]
     Route: 058
     Dates: start: 20130115, end: 201304
  2. BICALUTAMIDE ORION [Concomitant]
     Dates: start: 201304, end: 20130923
  3. HARMONE THERAPY [Concomitant]
     Dates: end: 20130923
  4. L-DOPA [Concomitant]
     Indication: PARKINSON^S DISEASE
     Dates: start: 20131018
  5. ANTIDEPRESSANT [Concomitant]
  6. SEDATIVES [Concomitant]

REACTIONS (6)
  - Brain neoplasm [Fatal]
  - Pneumonia [Unknown]
  - Chills [Not Recovered/Not Resolved]
  - Muscular weakness [Not Recovered/Not Resolved]
  - Muscular weakness [Not Recovered/Not Resolved]
  - Hyperhidrosis [Not Recovered/Not Resolved]
